FAERS Safety Report 4310275-5 (Version None)
Quarter: 2004Q1

REPORT INFORMATION
  Report Type: 
  Country: None (occurrence: None)
  Receive Date: 20040303
  Receipt Date: 20040220
  Transmission Date: 20041129
  Serious: Yes (Congenital Anomaly)
  Sender: FDA-Public Use
  Company Number: US-BRISTOL-MYERS SQUIBB COMPANY-12514824

PATIENT
  Sex: Male
  Weight: 3 kg

DRUGS (5)
  1. VIDEX [Suspect]
     Route: 064
     Dates: start: 20030529, end: 20030729
  2. VIRACEPT [Suspect]
     Route: 064
     Dates: end: 20030529
  3. COMBIVIR [Suspect]
     Route: 064
     Dates: end: 20030729
  4. FORTOVASE [Suspect]
     Route: 064
     Dates: start: 20030529, end: 20030729
  5. NORVIR [Suspect]
     Route: 064
     Dates: start: 20030529, end: 20030729

REACTIONS (3)
  - ANOMALY OF EXTERNAL EAR CONGENITAL [None]
  - EXTERNAL AUDITORY CANAL ATRESIA [None]
  - PREGNANCY [None]
